FAERS Safety Report 14250199 (Version 15)
Quarter: 2020Q3

REPORT INFORMATION
  Report Type: Other
  Country: IT (occurrence: IT)
  Receive Date: 20171205
  Receipt Date: 20200927
  Transmission Date: 20201102
  Serious: Yes (Hospitalization, Other)
  Sender: FDA-Public Use
  Company Number: IT-ROCHE-1703806

PATIENT
  Age: 58 Year
  Sex: Female
  Weight: 88 kg

DRUGS (18)
  1. ZOLPIDEM [Concomitant]
     Active Substance: ZOLPIDEM TARTRATE
     Indication: INSOMNIA
     Dates: start: 20140604, end: 20140610
  2. TRIMETON [Concomitant]
     Active Substance: CHLORPHENIRAMINE MALEATE
     Indication: PREMEDICATION
     Dosage: 10 MG/1 ML 5 X 1 ML VIALS
     Route: 030
     Dates: start: 20130509, end: 20130509
  3. PARACODINE [Concomitant]
     Active Substance: DIHYDROCODEINE BITARTRATE
     Dates: start: 20181207, end: 20190215
  4. TRASTUZUMAB EMTANSINE [Suspect]
     Active Substance: ADO-TRASTUZUMAB EMTANSINE
     Route: 065
     Dates: start: 20190626
  5. CEFIXORAL [Concomitant]
     Active Substance: CEFIXIME
     Indication: STOMATITIS
     Dates: start: 20151217
  6. IBUPROFEN. [Concomitant]
     Active Substance: IBUPROFEN
     Indication: COUGH
     Route: 048
     Dates: start: 20150115, end: 20150116
  7. BROTIZOLAM [Concomitant]
     Active Substance: BROTIZOLAM
     Indication: INSOMNIA
     Dates: start: 20140611, end: 20140612
  8. NISTATINA [Concomitant]
     Active Substance: NYSTATIN
     Indication: MUCOSAL INFLAMMATION
     Dates: start: 20140606
  9. TRASTUZUMAB EMTANSINE [Suspect]
     Active Substance: ADO-TRASTUZUMAB EMTANSINE
     Indication: BREAST CANCER METASTATIC
     Dosage: FU CYCLE 36 ON 01/JUL/2016?37 CYCLE ON 29/JUL/2016?SUBSEQUENT DOSE ON : 09/JUN/2017?72TH THERAPY CYC
     Route: 042
     Dates: start: 20130509
  10. TRASTUZUMAB EMTANSINE [Suspect]
     Active Substance: ADO-TRASTUZUMAB EMTANSINE
     Route: 042
  11. NISTATINA [Concomitant]
     Active Substance: NYSTATIN
     Indication: STOMATITIS
  12. OMEPRAZOLO [Concomitant]
     Active Substance: OMEPRAZOLE
     Indication: DYSPEPSIA
     Dates: start: 20140604, end: 20140609
  13. DEXAMETHASONE. [Concomitant]
     Active Substance: DEXAMETHASONE
     Indication: NAUSEA
     Dates: start: 20140605
  14. BISOPROLOL [Concomitant]
     Active Substance: BISOPROLOL
     Indication: HYPERTENSION
  15. FLUCONAZOLE. [Concomitant]
     Active Substance: FLUCONAZOLE
     Indication: DYSPEPSIA
     Dates: start: 20140612
  16. LANSOPRAZOLE. [Concomitant]
     Active Substance: LANSOPRAZOLE
     Dates: start: 20181207, end: 20190215
  17. MYCOSTATIN [Concomitant]
     Active Substance: NYSTATIN
     Dosage: 1 APP DAILY,
  18. SIDERAL FORTE [Concomitant]
     Active Substance: ASCORBIC ACID\FERRIC PYROPHOSPHATE
     Route: 048
     Dates: start: 20190319

REACTIONS (55)
  - Varicella [Recovered/Resolved]
  - Oedema peripheral [Not Recovered/Not Resolved]
  - Pyrexia [Recovered/Resolved]
  - Epistaxis [Not Recovered/Not Resolved]
  - Stomatitis [Recovered/Resolved]
  - Blister [Unknown]
  - Ejection fraction decreased [Recovered/Resolved]
  - Asthenia [Recovered/Resolved]
  - Back pain [Recovered/Resolved]
  - Dysphagia [Recovered/Resolved]
  - Dysuria [Recovered/Resolved]
  - Cystitis [Recovered/Resolved]
  - Sopor [Recovered/Resolved]
  - Somnolence [Not Recovered/Not Resolved]
  - Mood altered [Unknown]
  - Haematoma [Unknown]
  - Stomatitis [Not Recovered/Not Resolved]
  - Arrhythmia [Not Recovered/Not Resolved]
  - Strangury [Recovered/Resolved]
  - Pseudomonal sepsis [Recovered/Resolved]
  - Stomatitis [Recovered/Resolved]
  - Mucosal inflammation [Recovered/Resolved]
  - Skin warm [Unknown]
  - Gingival bleeding [Not Recovered/Not Resolved]
  - Neutropenia [Recovered/Resolved]
  - Thrombocytopenia [Not Recovered/Not Resolved]
  - Cough [Recovered/Resolved]
  - Asthenia [Recovered/Resolved]
  - Oedema peripheral [Unknown]
  - Aphthous ulcer [Recovered/Resolved]
  - Gingival pain [Recovered/Resolved]
  - Injury [Recovered/Resolved]
  - Anaemia [Not Recovered/Not Resolved]
  - Vomiting [Recovered/Resolved]
  - Thrombocytopenia [Unknown]
  - Cystitis [Recovered/Resolved]
  - Odynophagia [Unknown]
  - Productive cough [Recovered/Resolved]
  - Fall [Recovered/Resolved]
  - Slow speech [Recovered/Resolved]
  - Pyrexia [Recovered/Resolved]
  - Dry skin [Unknown]
  - Mastitis fungal [Not Recovered/Not Resolved]
  - Pain [Not Recovered/Not Resolved]
  - Pollakiuria [Unknown]
  - Cough [Not Recovered/Not Resolved]
  - Tongue dry [Not Recovered/Not Resolved]
  - Hypoaesthesia [Not Recovered/Not Resolved]
  - Dermatitis [Not Recovered/Not Resolved]
  - Spinal pain [Not Recovered/Not Resolved]
  - Thrombocytopenia [Not Recovered/Not Resolved]
  - Tooth abscess [Recovered/Resolved]
  - Off label use [Unknown]
  - Vomiting [Recovered/Resolved]
  - Oedema peripheral [Not Recovered/Not Resolved]

NARRATIVE: CASE EVENT DATE: 20130513
